FAERS Safety Report 8597944-6 (Version None)
Quarter: 2012Q3

REPORT INFORMATION
  Report Type: 
  Country: None (occurrence: None)
  Receive Date: 20120803
  Receipt Date: 20120720
  Transmission Date: 20120928
  Serious: Yes (Other)
  Sender: FDA-Public Use
  Company Number: 1358742

PATIENT
  Age: 61 Year
  Sex: Female
  Weight: 82 kg

DRUGS (4)
  1. ONDANSETRON [Concomitant]
  2. DOCETAXEL [Suspect]
     Indication: BREAST NEOPLASM
     Dosage: 187 MG MILLIGRAM(S), INTRAVENOUS DRIP
     Route: 042
     Dates: start: 20120627
  3. METOCLOPRAMIDE [Concomitant]
  4. MEDROL [Concomitant]

REACTIONS (6)
  - PARAESTHESIA [None]
  - EPISTAXIS [None]
  - SKIN TOXICITY [None]
  - PALMAR-PLANTAR ERYTHRODYSAESTHESIA SYNDROME [None]
  - APHTHOUS STOMATITIS [None]
  - DYSPEPSIA [None]
